FAERS Safety Report 25136316 (Version 3)
Quarter: 2025Q2

REPORT INFORMATION
  Report Type: Spontaneous
  Country: FR (occurrence: FR)
  Receive Date: 20250328
  Receipt Date: 20250411
  Transmission Date: 20250717
  Serious: Yes (Other)
  Sender: ORGANON
  Company Number: FR-ORGANON-O2503FRA002622

PATIENT
  Age: 76 Year
  Sex: Male

DRUGS (2)
  1. EBASTINE [Suspect]
     Active Substance: EBASTINE
     Indication: Hypersensitivity
     Dosage: 1 DOSAGE FORM, QD, (TAKE IN THE EVENING, (PRESCRIBED 20 TABLETS) (THE RECOMMENDED DOSE IS ONE TABLET
     Route: 048
     Dates: start: 20250305, end: 20250405
  2. SOTALOL HYDROCHLORIDE [Concomitant]
     Active Substance: SOTALOL HYDROCHLORIDE
     Dosage: 40 MG IN TWO TAKES/DAY

REACTIONS (7)
  - Cardiac disorder [Not Recovered/Not Resolved]
  - Dyspnoea exertional [Not Recovered/Not Resolved]
  - Fatigue [Not Recovered/Not Resolved]
  - Headache [Unknown]
  - Heart rate abnormal [Unknown]
  - Flushing [Not Recovered/Not Resolved]
  - Erythema [Not Recovered/Not Resolved]

NARRATIVE: CASE EVENT DATE: 20250301
